FAERS Safety Report 6485199-8 (Version None)
Quarter: 2009Q4

REPORT INFORMATION
  Report Type: 
  Country: None (occurrence: None)
  Receive Date: 20091209
  Receipt Date: 20090715
  Transmission Date: 20100525
  Serious: No
  Sender: FDA-Public Use
  Company Number: US-AMGEN-KDL351940

PATIENT
  Sex: Female
  Weight: 77.6 kg

DRUGS (3)
  1. ENBREL [Suspect]
     Indication: RHEUMATOID ARTHRITIS
     Route: 058
     Dates: start: 20070301, end: 20070801
  2. REMICADE [Suspect]
  3. METHOTREXATE [Concomitant]
     Route: 048
     Dates: start: 20070301

REACTIONS (2)
  - ADVERSE EVENT [None]
  - TRANSAMINASES INCREASED [None]
